FAERS Safety Report 8194554-X (Version None)
Quarter: 2012Q1

REPORT INFORMATION
  Report Type: 
  Country: None (occurrence: None)
  Receive Date: 20120308
  Receipt Date: 20110630
  Transmission Date: 20120608
  Serious: No
  Sender: FDA-Public Use
  Company Number: US-GLAXOSMITHKLINE-A0934064A

PATIENT
  Age: 43 Year
  Sex: Male

DRUGS (1)
  1. NICOTINE POLACRILEX [Suspect]
     Indication: DRUG WITHDRAWAL MAINTENANCE THERAPY
     Dates: start: 20110627, end: 20110628

REACTIONS (3)
  - DIZZINESS [None]
  - DRUG ADMINISTRATION ERROR [None]
  - BLOOD PRESSURE INCREASED [None]
